FAERS Safety Report 6766172-9 (Version None)
Quarter: 2010Q2

REPORT INFORMATION
  Report Type: 
  Country: None (occurrence: None)
  Receive Date: 20100609
  Receipt Date: 20100527
  Transmission Date: 20101027
  Serious: Yes (Hospitalization)
  Sender: FDA-Public Use
  Company Number: 2010AP001117

PATIENT
  Age: 14 Year
  Sex: Female

DRUGS (6)
  1. TOPIRAMATE [Suspect]
     Indication: EPILEPSY
     Dosage: 100 MG;PO;BID
     Route: 048
     Dates: start: 20100301
  2. TOPIRAMATE [Suspect]
     Indication: TUBEROUS SCLEROSIS
     Dosage: 100 MG;PO;BID
     Route: 048
     Dates: start: 20100301
  3. OXCARBAZEPINE [Concomitant]
  4. OXCARBAZEPINE [Concomitant]
  5. TOPIRAMATE [Concomitant]
  6. TOPIRAMATE [Concomitant]

REACTIONS (2)
  - HALLUCINATION, VISUAL [None]
  - PSYCHOTIC DISORDER [None]
